FAERS Safety Report 26077122 (Version 1)
Quarter: 2025Q4

REPORT INFORMATION
  Report Type: Spontaneous
  Country: CN (occurrence: CN)
  Receive Date: 20251121
  Receipt Date: 20251121
  Transmission Date: 20260118
  Serious: Yes (Other)
  Sender: MERCK SHARP & DOHME LLC
  Company Number: CN-009507513-2350830

PATIENT
  Age: 49 Year
  Sex: Male
  Weight: 97 kg

DRUGS (1)
  1. KEYTRUDA [Suspect]
     Active Substance: PEMBROLIZUMAB
     Indication: Hepatic cancer
     Route: 041
     Dates: start: 20250620, end: 20250825

REACTIONS (7)
  - Malignant neoplasm progression [Unknown]
  - Hypothyroidism [Unknown]
  - Adrenal insufficiency [Unknown]
  - Hepatitis B [Unknown]
  - Hepatic cirrhosis [Unknown]
  - Type 2 diabetes mellitus [Unknown]
  - Gout [Unknown]

NARRATIVE: CASE EVENT DATE: 20250101
